FAERS Safety Report 15932850 (Version 3)
Quarter: 2019Q1

REPORT INFORMATION
  Report Type: Report from Study
  Country: US (occurrence: US)
  Receive Date: 20190207
  Receipt Date: 20190320
  Transmission Date: 20190417
  Serious: Yes (Other)
  Sender: FDA-Public Use
  Company Number: US-JNJFOC-20190129220

PATIENT
  Sex: Female

DRUGS (14)
  1. ATENOLOL. [Concomitant]
     Active Substance: ATENOLOL
  2. RISA-BID [Concomitant]
  3. SIMVASTATIN. [Concomitant]
     Active Substance: SIMVASTATIN
  4. GLIPIZIDE. [Concomitant]
     Active Substance: GLIPIZIDE
  5. NIFEDIAC CC [Concomitant]
     Active Substance: NIFEDIPINE
  6. GLUCOSAMINE W/CHONDROITIN [Concomitant]
     Active Substance: CHONDROITIN SULFATE A\GLUCOSAMINE
  7. METFORMIN [Concomitant]
     Active Substance: METFORMIN HYDROCHLORIDE
  8. IRBESARTAN. [Concomitant]
     Active Substance: IRBESARTAN
  9. ASPIRIN. [Concomitant]
     Active Substance: ASPIRIN
  10. IMBRUVICA [Suspect]
     Active Substance: IBRUTINIB
     Indication: CHRONIC LEUKAEMIA
     Route: 048
     Dates: start: 20190111
  11. COD LIVER OIL [Concomitant]
     Active Substance: COD LIVER OIL
  12. IMBRUVICA [Suspect]
     Active Substance: IBRUTINIB
     Indication: CHRONIC LEUKAEMIA
     Route: 048
     Dates: start: 20180405
  13. GLUCOSAMINE [Concomitant]
     Active Substance: GLUCOSAMINE
  14. CARVEDILOL. [Concomitant]
     Active Substance: CARVEDILOL

REACTIONS (5)
  - Palpitations [Unknown]
  - Haemorrhage [Unknown]
  - Increased tendency to bruise [Unknown]
  - Onychoclasis [Unknown]
  - Contusion [Unknown]
